FAERS Safety Report 4384131-0 (Version None)
Quarter: 2004Q2

REPORT INFORMATION
  Report Type: 
  Country: None (occurrence: None)
  Receive Date: 20040621
  Receipt Date: 20040608
  Transmission Date: 20050107
  Serious: Yes (Hospitalization, Other)
  Sender: FDA-Public Use
  Company Number: 2003034896

PATIENT
  Age: 71 Year
  Sex: Male

DRUGS (7)
  1. PROCARDIA XL [Suspect]
     Indication: HYPERTENSION
     Dosage: 90 MG (1 IN 1 D), ORAL
     Route: 048
     Dates: start: 20021231
  2. ATENOLOL [Concomitant]
  3. HYDROCHLOROTHIAZIDE [Concomitant]
  4. DILTIAZEM [Concomitant]
  5. QUINAPRIL HCL [Concomitant]
  6. LISINOPRIL [Concomitant]
  7. ATORVASTATIN (ATORVASTATIN) [Concomitant]

REACTIONS (13)
  - ABDOMINAL ADHESIONS [None]
  - ABDOMINAL HERNIA [None]
  - ADHESION [None]
  - AORTIC ANEURYSM [None]
  - BEZOAR [None]
  - BLOOD PRESSURE INCREASED [None]
  - CHEST X-RAY ABNORMAL [None]
  - DISEASE RECURRENCE [None]
  - INTESTINAL HAEMORRHAGE [None]
  - PHARMACEUTICAL PRODUCT COMPLAINT [None]
  - POST PROCEDURAL COMPLICATION [None]
  - SCAR [None]
  - SMALL INTESTINAL OBSTRUCTION [None]
